FAERS Safety Report 6222963-4 (Version None)
Quarter: 2009Q2

REPORT INFORMATION
  Report Type: 
  Country: None (occurrence: None)
  Receive Date: 20090609
  Receipt Date: 20090529
  Transmission Date: 20091009
  Serious: Yes (Disabling)
  Sender: FDA-Public Use
  Company Number: 2009AP002198

PATIENT
  Age: 80 Year
  Sex: Female

DRUGS (10)
  1. ALENDRONATE SODIUM [Suspect]
     Indication: OSTEOPOROTIC FRACTURE
     Dosage: 70 MG, QW; PO
     Route: 048
     Dates: start: 20080222
  2. CALCIUM CARBONATE (CALCIUM CARBONATE) [Concomitant]
  3. COLECALCIFEROL (COLECALCIFEROL) [Concomitant]
  4. ASPIRIN [Concomitant]
  5. AMILORIDE HYDROCHLORIDE [Concomitant]
  6. FUROSEMIDE [Concomitant]
  7. GABAPENTIN [Concomitant]
  8. LOSARTAN POTASSIUM [Concomitant]
  9. OMEPRAZOLE [Concomitant]
  10. BEZAFIBRATE (BEZAFIBRATE) [Concomitant]

REACTIONS (1)
  - FEMUR FRACTURE [None]
